FAERS Safety Report 15831839 (Version 3)
Quarter: 2019Q4

REPORT INFORMATION
  Report Type: Report from Study
  Country: DE (occurrence: DE)
  Receive Date: 20190116
  Receipt Date: 20191129
  Transmission Date: 20200122
  Serious: Yes (Hospitalization, Other)
  Sender: FDA-Public Use
  Company Number: PHHY2018DE036552

PATIENT
  Age: 79 Year
  Sex: Female
  Weight: 65 kg

DRUGS (20)
  1. PANTOZOL [Concomitant]
     Active Substance: PANTOPRAZOLE SODIUM
     Dosage: 20 MG, QD 1X1
     Route: 048
     Dates: start: 20180102
  2. AESCUSAN [Concomitant]
     Indication: PROPHYLAXIS
     Dosage: 40 MG, BID 1X2
     Route: 048
  3. VIDAZA [Concomitant]
     Active Substance: AZACITIDINE
     Indication: MYELODYSPLASTIC SYNDROME
     Dosage: 129 MG, 1XDAILY 7XWEEKLY EVERY 4 WEEKS
     Route: 065
     Dates: start: 20171225, end: 20181026
  4. FENISTIL [Concomitant]
     Active Substance: DIMETHINDENE
     Indication: PROPHYLAXIS
     Dosage: UNK UNK, PRN
     Route: 065
     Dates: start: 20180130
  5. EXJADE [Suspect]
     Active Substance: DEFERASIROX
     Dosage: 10.9 MG/KG BODYWEIGHT/DAY: 02 TABLETS OF 360 MG
     Route: 042
     Dates: start: 20180323, end: 20180326
  6. ALLOPURINOL. [Concomitant]
     Active Substance: ALLOPURINOL
     Dosage: 100 MG, QD
     Route: 048
     Dates: start: 20180102
  7. CYTARABINE. [Concomitant]
     Active Substance: CYTARABINE
     Indication: MYELODYSPLASTIC SYNDROME
     Dosage: 1 DF, QD
     Route: 065
     Dates: start: 20171221, end: 20171223
  8. EXJADE [Suspect]
     Active Substance: DEFERASIROX
     Indication: MYELODYSPLASTIC SYNDROME
     Dosage: 12.46 MG/KG BODYWEIGHT/DAY: O1 TABLET 90  MG, 02 TABLETS OF 360 MG
     Route: 042
     Dates: start: 20180319, end: 20180322
  9. MOVICOL [Concomitant]
     Active Substance: POLYETHYLENE GLYCOL 3350\POTASSIUM CHLORIDE\SODIUM BICARBONATE\SODIUM CHLORIDE
     Indication: PROPHYLAXIS
     Dosage: 13,7 G, PRN
     Route: 065
     Dates: start: 201712, end: 20180221
  10. ALLOPURINOL. [Concomitant]
     Active Substance: ALLOPURINOL
     Indication: PROPHYLAXIS
     Dosage: 300 MG, QD
     Route: 048
     Dates: start: 20171218, end: 20180101
  11. PANTOZOL [Concomitant]
     Active Substance: PANTOPRAZOLE SODIUM
     Indication: PROPHYLAXIS
     Dosage: 40 MG, QD 1X1
     Route: 048
     Dates: start: 201712, end: 20180101
  12. METOCLOPRAMIDE. [Concomitant]
     Active Substance: METOCLOPRAMIDE
     Indication: PROPHYLAXIS
     Dosage: 30 MG, TID
     Route: 065
     Dates: start: 20180102
  13. CYTARABINE. [Concomitant]
     Active Substance: CYTARABINE
     Indication: ACUTE MYELOID LEUKAEMIA
  14. VIDAZA [Concomitant]
     Active Substance: AZACITIDINE
     Indication: ACUTE MYELOID LEUKAEMIA
  15. ONDANSETRON [Concomitant]
     Active Substance: ONDANSETRON
     Indication: PROPHYLAXIS
     Dosage: 16 MG, BID
     Route: 065
     Dates: start: 20180102
  16. DESFERAL [Suspect]
     Active Substance: DEFEROXAMINE MESYLATE
     Indication: MYELODYSPLASTIC SYNDROME
     Dosage: 30.3 MG/KG, UNK
     Route: 042
     Dates: start: 20180424
  17. RAMIPRIL. [Concomitant]
     Active Substance: RAMIPRIL
     Indication: HYPERTENSION
     Dosage: 2,5 MG, QD 1X1
     Route: 065
     Dates: start: 20171218
  18. BIFITERAL [Concomitant]
     Active Substance: LACTULOSE
     Indication: PROPHYLAXIS
     Dosage: 1-3 TABLESPOON, PRN
     Route: 048
     Dates: start: 20180222
  19. MYRRH TINCTURE [Concomitant]
     Indication: MUCOSAL INFLAMMATION
     Dosage: UNK
     Route: 065
     Dates: start: 20180219
  20. AZACITIDINA [Concomitant]
     Active Substance: AZACITIDINE
     Indication: PRODUCT USED FOR UNKNOWN INDICATION
     Route: 065

REACTIONS (16)
  - Diarrhoea [Recovered/Resolved]
  - Myelodysplastic syndrome [Recovered/Resolved]
  - Fatigue [Unknown]
  - Klebsiella infection [Recovered/Resolved]
  - Liver injury [Unknown]
  - Headache [Unknown]
  - Dysuria [Recovered/Resolved]
  - Nausea [Unknown]
  - Infection [Recovered/Resolved]
  - Stomatitis [Recovering/Resolving]
  - Urinary tract infection [Recovered/Resolved]
  - Alanine aminotransferase increased [Recovered/Resolved]
  - Malignant neoplasm progression [Recovered/Resolved]
  - Urinary tract infection [Recovered/Resolved]
  - Urinary tract infection [Recovered/Resolved]
  - Drug intolerance [Unknown]

NARRATIVE: CASE EVENT DATE: 20180619
